FAERS Safety Report 6876696-1 (Version None)
Quarter: 2010Q3

REPORT INFORMATION
  Report Type: 
  Country: None (occurrence: None)
  Receive Date: 20100727
  Receipt Date: 20100716
  Transmission Date: 20110219
  Serious: Yes (Other)
  Sender: FDA-Public Use
  Company Number: US-ROCHE-716437

PATIENT
  Sex: Male

DRUGS (2)
  1. XELODA [Suspect]
     Dosage: BID X 14 DAYS
     Route: 048
     Dates: start: 20090601
  2. XELODA [Suspect]
     Dosage: BID X 14 DAYS
     Route: 048
     Dates: start: 20100601

REACTIONS (3)
  - EXPIRED DRUG ADMINISTERED [None]
  - MALIGNANT NEOPLASM PROGRESSION [None]
  - NO ADVERSE EVENT [None]
